FAERS Safety Report 20671010 (Version 1)
Quarter: 2022Q2

REPORT INFORMATION
  Report Type: Spontaneous
  Country: US (occurrence: US)
  Receive Date: 20220404
  Receipt Date: 20220404
  Transmission Date: 20220721
  Serious: No
  Sender: FDA-Public Use
  Company Number: US-INCYTE CORPORATION-2022IN002970

PATIENT

DRUGS (3)
  1. JAKAFI [Suspect]
     Active Substance: RUXOLITINIB
     Dosage: 20MG AND 10MG ON ALTERNATING DAYS
     Route: 048
     Dates: start: 201912
  2. JAKAFI [Suspect]
     Active Substance: RUXOLITINIB
     Dosage: 12.5 MILLIGRAM, BID
     Route: 048
     Dates: start: 2022
  3. JAKAFI [Suspect]
     Active Substance: RUXOLITINIB
     Dosage: 20MG TOTAL DAILY DOSE (10MG BID) ALTERNATING WITH 30MG TOTAL DAILY DOSE (15MG BID)
     Route: 048

REACTIONS (2)
  - Off label use [Unknown]
  - Wrong technique in product usage process [Unknown]
